FAERS Safety Report 7498749-X (Version None)
Quarter: 2011Q2

REPORT INFORMATION
  Report Type: 
  Country: None (occurrence: None)
  Receive Date: 20110524
  Receipt Date: 20110519
  Transmission Date: 20111010
  Serious: Yes (Death, Life-Threatening, Hospitalization)
  Sender: FDA-Public Use
  Company Number: JP-CEPHALON-2011001096

PATIENT
  Sex: Female
  Weight: 41 kg

DRUGS (4)
  1. ITRACONAZOLE [Concomitant]
     Dates: start: 20110108, end: 20110210
  2. BENDAMUSTINE HCL [Suspect]
     Indication: B-CELL SMALL LYMPHOCYTIC LYMPHOMA
     Route: 042
     Dates: start: 20110128, end: 20110129
  3. POTASSIUM CHLORIDE [Concomitant]
     Dates: start: 20110201, end: 20110305
  4. FOSCARNET SODIUM [Concomitant]
     Dates: start: 20110124, end: 20110131

REACTIONS (14)
  - CARDIAC FAILURE [None]
  - SHOCK HAEMORRHAGIC [None]
  - BLOOD SODIUM DECREASED [None]
  - RENAL FAILURE [None]
  - CYTOMEGALOVIRUS INFECTION [None]
  - WHITE BLOOD CELL COUNT DECREASED [None]
  - BLOOD POTASSIUM DECREASED [None]
  - NEUTROPHIL COUNT DECREASED [None]
  - HYPERBILIRUBINAEMIA [None]
  - BLOOD CHLORIDE DECREASED [None]
  - PLATELET COUNT DECREASED [None]
  - CYSTITIS HAEMORRHAGIC [None]
  - B-CELL SMALL LYMPHOCYTIC LYMPHOMA [None]
  - SEPSIS [None]
